FAERS Safety Report 6997770-5 (Version None)
Quarter: 2010Q3

REPORT INFORMATION
  Report Type: 
  Country: None (occurrence: None)
  Receive Date: 20100920
  Receipt Date: 20100910
  Transmission Date: 20110219
  Serious: Yes (Hospitalization)
  Sender: FDA-Public Use
  Company Number: US-BIOGENIDEC-2010BI010973

PATIENT
  Age: 37 Year
  Sex: Female

DRUGS (4)
  1. TYSABRI [Suspect]
     Indication: MULTIPLE SCLEROSIS
     Route: 042
     Dates: start: 20071217, end: 20091204
  2. PRENATAL VITAMINS [Concomitant]
  3. LOVENOX [Concomitant]
  4. 17 P INJECTIONS [Concomitant]

REACTIONS (2)
  - PREGNANCY [None]
  - PREMATURE SEPARATION OF PLACENTA [None]
